FAERS Safety Report 21548588 (Version 1)
Quarter: 2022Q4

REPORT INFORMATION
  Report Type: Spontaneous
  Country: US (occurrence: US)
  Receive Date: 20221103
  Receipt Date: 20221103
  Transmission Date: 20230113
  Serious: No
  Sender: FDA-Public Use
  Company Number: US-TEVA-2022-US-2818428

PATIENT
  Age: 19 Year
  Sex: Female
  Weight: 99.79 kg

DRUGS (2)
  1. SPRINTEC [Suspect]
     Active Substance: ETHINYL ESTRADIOL\NORGESTIMATE
     Indication: Contraception
     Route: 065
  2. PAXLOVID [Suspect]
     Active Substance: NIRMATRELVIR\RITONAVIR
     Indication: COVID-19
     Dosage: 3 TABLETS IN THE MORNING AND 3 TABLETS AT NIGHT FOR 5?DAYS
     Dates: start: 20221011

REACTIONS (2)
  - Rash [Unknown]
  - Product dose omission issue [Unknown]
